FAERS Safety Report 9378452 (Version 1)
Quarter: 2013Q3

REPORT INFORMATION
  Report Type: Spontaneous
  Country: CH (occurrence: CH)
  Receive Date: 20130701
  Receipt Date: 20130701
  Transmission Date: 20140515
  Serious: Yes (Hospitalization)
  Sender: FDA-Public Use
  Company Number: CH-ROCHE-1241697

PATIENT
  Age: 82 Year
  Sex: Male
  Weight: 77.5 kg

DRUGS (7)
  1. ROCEPHIN [Suspect]
     Indication: PRODUCT USED FOR UNKNOWN INDICATION
     Route: 042
     Dates: start: 20130410, end: 20130412
  2. AUGMENTIN [Suspect]
     Indication: PRODUCT USED FOR UNKNOWN INDICATION
     Route: 048
     Dates: start: 20130412, end: 20130416
  3. ZYLORIC [Suspect]
     Indication: PRODUCT USED FOR UNKNOWN INDICATION
     Route: 048
  4. ASPIRIN CARDIO [Concomitant]
     Route: 048
  5. PANTOPRAZOLE [Concomitant]
     Route: 048
  6. APYDAN [Concomitant]
     Route: 048
  7. PREDNISONE [Concomitant]

REACTIONS (3)
  - Hypersensitivity vasculitis [Recovered/Resolved]
  - Cardiac failure [Recovering/Resolving]
  - Renal failure chronic [Recovering/Resolving]
